FAERS Safety Report 18053374 (Version 1)
Quarter: 2020Q3

REPORT INFORMATION
  Report Type: Spontaneous
  Country: US (occurrence: US)
  Receive Date: 20200721
  Receipt Date: 20200721
  Transmission Date: 20201103
  Serious: Yes (Other)
  Sender: FDA-Public Use
  Company Number: None

PATIENT
  Age: 30 Year
  Sex: Female

DRUGS (1)
  1. DROSP?EE?LEVOMEE [Suspect]
     Active Substance: DROSPIRENONE\ETHINYL ESTRADIOL\LEVOMEFOLATE CALCIUM
     Indication: MENSTRUATION IRREGULAR
     Dosage: ?          OTHER DOSE:1;?
     Route: 048
     Dates: start: 2018

REACTIONS (4)
  - Abdominal distension [None]
  - Headache [None]
  - Muscle spasms [None]
  - Increased appetite [None]
